FAERS Safety Report 17523235 (Version 1)
Quarter: 2020Q1

REPORT INFORMATION
  Report Type: Report from Study
  Country: EC (occurrence: EC)
  Receive Date: 20200311
  Receipt Date: 20200311
  Transmission Date: 20200409
  Serious: Yes (Life-Threatening, Hospitalization, Other)
  Sender: FDA-Public Use
  Company Number: EC-ROCHE-2396196

PATIENT
  Sex: Female

DRUGS (1)
  1. BONVIVA [Suspect]
     Active Substance: IBANDRONATE SODIUM
     Indication: OSTEOPOROSIS
     Route: 065

REACTIONS (16)
  - Dysstasia [Unknown]
  - Pain [Unknown]
  - Malaise [Unknown]
  - Somnolence [Unknown]
  - Back pain [Unknown]
  - Abdominal pain upper [Unknown]
  - Depression [Unknown]
  - Gastric ulcer [Unknown]
  - Loss of consciousness [Unknown]
  - Apparent death [Unknown]
  - Pain in extremity [Unknown]
  - Feeling abnormal [Unknown]
  - Spinal pain [Unknown]
  - Headache [Unknown]
  - Bone disorder [Unknown]
  - Chest pain [Unknown]
